FAERS Safety Report 9327085 (Version 1)
Quarter: 2013Q2

REPORT INFORMATION
  Report Type: Spontaneous
  Country: US (occurrence: None)
  Receive Date: 20130530
  Receipt Date: 20130530
  Transmission Date: 20140414
  Serious: Yes (Hospitalization)
  Sender: FDA-Public Use
  Company Number: SYM-2013-03933

PATIENT
  Age: 78 Year
  Sex: Female
  Weight: 59 kg

DRUGS (4)
  1. FLUOROURACIL [Suspect]
     Indication: ADENOCARCINOMA OF COLON
     Dosage: 400 MG/M2, CYCLIC
     Route: 042
     Dates: start: 20130214
  2. CELECOXIB [Suspect]
     Indication: ADENOCARCINOMA OF COLON
     Dates: start: 20130214
  3. LEUCOVORIN CALCIUM [Suspect]
     Indication: ADENOCARCINOMA OF COLON
     Dosage: 400 MG/M2, CYCLIC
     Dates: start: 20130214
  4. ELOXATIN [Suspect]
     Indication: ADENOCARCINOMA OF COLON
     Dosage: 85 MG/M2, CYCLIC, INTRAVENOUS
     Route: 042
     Dates: start: 20130214

REACTIONS (4)
  - Dehydration [None]
  - Diarrhoea [None]
  - Asthenia [None]
  - Renal failure acute [None]
